FAERS Safety Report 24701418 (Version 1)
Quarter: 2024Q4

REPORT INFORMATION
  Report Type: Spontaneous
  Country: US (occurrence: None)
  Receive Date: 20241205
  Receipt Date: 20241205
  Transmission Date: 20250115
  Serious: Yes (Other)
  Sender: Public
  Company Number: None

PATIENT
  Age: 72 Year
  Sex: Female
  Weight: 61.69 kg

DRUGS (1)
  1. BREYNA [Suspect]
     Active Substance: BUDESONIDE\FORMOTEROL FUMARATE
     Indication: Asthma
     Dosage: OTHER QUANTITY : 2 PUFFS/12HOURS;?FREQUENCY : TWICE A DAY;?
     Route: 048
     Dates: start: 20240410, end: 20240510

REACTIONS (6)
  - Pneumonitis [None]
  - Tongue blistering [None]
  - Oral mucosal blistering [None]
  - Ageusia [None]
  - Cough [None]
  - Dyspnoea [None]

NARRATIVE: CASE EVENT DATE: 20241004
